FAERS Safety Report 10196479 (Version 1)
Quarter: 2014Q2

REPORT INFORMATION
  Report Type: Spontaneous
  Country: US (occurrence: None)
  Receive Date: 20140522
  Receipt Date: 20140522
  Transmission Date: 20141212
  Serious: Yes (Hospitalization)
  Sender: FDA-Public Use
  Company Number: US-000992

PATIENT
  Age: 75 Year
  Sex: Female

DRUGS (7)
  1. GATTEX [Suspect]
     Indication: SHORT-BOWEL SYNDROME
     Route: 058
     Dates: start: 20140408, end: 201404
  2. SOLUTIONS FOR PARENTERAL NUTRITION [Concomitant]
  3. ABILIFY [Concomitant]
  4. CIPRO /00697201/ [Concomitant]
  5. WELLBUTRIN [Concomitant]
  6. METRONIDAZOLE [Concomitant]
  7. ULTRAM /00599202/ [Concomitant]

REACTIONS (4)
  - Nausea [None]
  - Vomiting [None]
  - Pyrexia [None]
  - Staphylococcal sepsis [None]
